FAERS Safety Report 7724676-6 (Version None)
Quarter: 2011Q3

REPORT INFORMATION
  Report Type: 
  Country: None (occurrence: None)
  Receive Date: 20110901
  Receipt Date: 20110822
  Transmission Date: 20111222
  Serious: Yes (Other)
  Sender: FDA-Public Use
  Company Number: US-UCBSA-039879

PATIENT
  Sex: Male

DRUGS (1)
  1. CIMZIA [Suspect]
     Indication: CROHN'S DISEASE
     Route: 058
     Dates: start: 20101019, end: 20101213

REACTIONS (5)
  - DYSPNOEA [None]
  - MYALGIA [None]
  - FATIGUE [None]
  - INSOMNIA [None]
  - ARTHRALGIA [None]
